FAERS Safety Report 4620693-3 (Version None)
Quarter: 2005Q1

REPORT INFORMATION
  Report Type: 
  Country: None (occurrence: None)
  Receive Date: 20050325
  Receipt Date: 20050315
  Transmission Date: 20050727
  Serious: Yes (Other)
  Sender: FDA-Public Use
  Company Number: 2005-03-0985

PATIENT
  Age: 48 Year
  Sex: Male

DRUGS (1)
  1. REBETOL [Suspect]
     Dosage: ORAL

REACTIONS (2)
  - CONVULSION [None]
  - DISEASE RECURRENCE [None]
